FAERS Safety Report 5583669-8 (Version None)
Quarter: 2008Q1

REPORT INFORMATION
  Report Type: 
  Country: None (occurrence: None)
  Receive Date: 20080102
  Receipt Date: 20071217
  Transmission Date: 20080703
  Serious: Yes (Death)
  Sender: FDA-Public Use
  Company Number: 171

PATIENT
  Sex: Male
  Weight: 51.7101 kg

DRUGS (7)
  1. FAZACLO 25 AND 100 MG ODT AZUR PHARMA [Suspect]
     Indication: SCHIZOAFFECTIVE DISORDER
     Dosage: 550 MG PO DAILY
     Route: 048
     Dates: start: 20051219, end: 20071215
  2. ATIVAN [Concomitant]
  3. HYTRIN [Concomitant]
  4. CLONAZEPAM [Concomitant]
  5. TRILAFON [Concomitant]
  6. LAMICTAL [Concomitant]
  7. ALBUTEROL [Concomitant]

REACTIONS (2)
  - RESPIRATORY DISTRESS [None]
  - TREATMENT NONCOMPLIANCE [None]
